FAERS Safety Report 17874265 (Version 2)
Quarter: 2020Q3

REPORT INFORMATION
  Report Type: Spontaneous
  Country: ES (occurrence: ES)
  Receive Date: 20200609
  Receipt Date: 20200708
  Transmission Date: 20201103
  Serious: Yes (Hospitalization, Other)
  Sender: FDA-Public Use
  Company Number: ES-VELOXIS PHARMACEUTICALS-2020VELES-000526

PATIENT
  Age: 73 Year
  Sex: Male

DRUGS (6)
  1. ENVARSUS XR [Suspect]
     Active Substance: TACROLIMUS
     Indication: IMMUNOSUPPRESSION
     Dosage: REDUCE DOSE
     Route: 065
     Dates: start: 202003
  2. PREDNISONE. [Suspect]
     Active Substance: PREDNISONE
     Indication: IMMUNOSUPPRESSION
     Dosage: UNK
     Route: 065
  3. LOPINAVIR;RITONAVIR [Suspect]
     Active Substance: LOPINAVIR\RITONAVIR
     Indication: COVID-19
     Dosage: 200/100 MG
     Route: 048
     Dates: start: 202003, end: 202003
  4. MPA [MYCOPHENOLIC ACID] [Suspect]
     Active Substance: MYCOPHENOLIC ACID
     Indication: IMMUNOSUPPRESSION
     Dosage: UNK
     Route: 065
  5. ENVARSUS XR [Suspect]
     Active Substance: TACROLIMUS
     Dosage: UNK
     Route: 065
  6. HYDROXYCHLOROQUINE [Concomitant]
     Active Substance: HYDROXYCHLOROQUINE
     Indication: COVID-19
     Dosage: 800 MILLIGRAM, QD FIRST 24 HOURS
     Route: 048
     Dates: start: 202003, end: 202003

REACTIONS (5)
  - Myocarditis [Unknown]
  - Off label use [Unknown]
  - Coronavirus infection [Unknown]
  - Drug interaction [Unknown]
  - Drug level abnormal [Unknown]

NARRATIVE: CASE EVENT DATE: 202003
